FAERS Safety Report 9000016 (Version 1)
Quarter: 2013Q1

REPORT INFORMATION
  Report Type: Spontaneous
  Country: FR (occurrence: FR)
  Receive Date: 20130102
  Receipt Date: 20130102
  Transmission Date: 20140127
  Serious: Yes (Hospitalization)
  Sender: FDA-Public Use
  Company Number: FR-PFIZER INC-2012330486

PATIENT
  Age: 76 Year
  Sex: Male

DRUGS (5)
  1. ESTRACYT [Suspect]
     Indication: PROSTATE CANCER
     Dosage: 140 MG, 2X/DAY
     Route: 048
     Dates: start: 201204, end: 20120928
  2. CRESTOR [Concomitant]
     Indication: DYSLIPIDAEMIA
     Dosage: UNK
     Route: 048
     Dates: end: 201209
  3. RENITEC [Concomitant]
     Dosage: UNK
     Route: 048
     Dates: end: 201209
  4. VASTAREL [Concomitant]
     Dosage: 2 DAILY DF
  5. KARDEGIC [Concomitant]
     Dosage: 75
     Dates: start: 201204

REACTIONS (1)
  - Pancreatitis relapsing [Unknown]
